FAERS Safety Report 11341817 (Version 1)
Quarter: 2015Q3

REPORT INFORMATION
  Report Type: Report from Study
  Country: NZ (occurrence: NZ)
  Receive Date: 20150805
  Receipt Date: 20150805
  Transmission Date: 20151125
  Serious: Yes (Hospitalization)
  Sender: FDA-Public Use
  Company Number: NZ-ABBVIE-15K-118-1436484-00

PATIENT
  Age: 31 Year
  Sex: Female

DRUGS (1)
  1. HUMIRA [Suspect]
     Active Substance: ADALIMUMAB
     Indication: ANKYLOSING SPONDYLITIS
     Route: 065
     Dates: start: 2015

REACTIONS (7)
  - Influenza like illness [Unknown]
  - Incorrect dose administered [Unknown]
  - Malaise [Unknown]
  - Headache [Unknown]
  - Wrong technique in product usage process [Unknown]
  - Bedridden [Unknown]
  - Viral infection [Unknown]

NARRATIVE: CASE EVENT DATE: 2015
